FAERS Safety Report 7191696-2 (Version None)
Quarter: 2010Q4

REPORT INFORMATION
  Report Type: 
  Country: None (occurrence: None)
  Receive Date: 20101223
  Receipt Date: 20101102
  Transmission Date: 20110411
  Serious: No
  Sender: FDA-Public Use
  Company Number: US-BAYER-201040333NA

PATIENT
  Sex: Female
  Weight: 68.027 kg

DRUGS (2)
  1. ULTRAVIST 150 [Suspect]
     Dosage: 125 ML, ONCE
     Route: 042
     Dates: start: 20101029, end: 20101029
  2. READI-CAT [Concomitant]
     Indication: COMPUTERISED TOMOGRAM ABDOMEN
     Dosage: UNK, ONCE
     Route: 048
     Dates: start: 20101029, end: 20101029

REACTIONS (2)
  - EYE PRURITUS [None]
  - THROAT IRRITATION [None]
